FAERS Safety Report 5051703-X (Version None)
Quarter: 2006Q3

REPORT INFORMATION
  Report Type: 
  Country: None (occurrence: None)
  Receive Date: 20060714
  Receipt Date: 20060713
  Transmission Date: 20061208
  Serious: Yes (Death, Hospitalization)
  Sender: FDA-Public Use
  Company Number: PHEH2006US09031

PATIENT
  Age: 63 Year
  Sex: Female

DRUGS (1)
  1. LAMISIL [Suspect]
     Route: 065

REACTIONS (6)
  - ABNORMAL BEHAVIOUR [None]
  - HEPATIC FAILURE [None]
  - JAUNDICE [None]
  - ORAL INTAKE REDUCED [None]
  - RENAL FAILURE [None]
  - URINARY TRACT INFECTION [None]
